FAERS Safety Report 16702224 (Version 3)
Quarter: 2019Q3

REPORT INFORMATION
  Report Type: Spontaneous
  Country: US (occurrence: US)
  Receive Date: 20190814
  Receipt Date: 20190905
  Transmission Date: 20191004
  Serious: No
  Sender: FDA-Public Use
  Company Number: US-PFIZER INC-2019343950

PATIENT
  Age: 34 Year
  Sex: Female
  Weight: 96.6 kg

DRUGS (3)
  1. EUCRISA [Suspect]
     Active Substance: CRISABOROLE
     Indication: ECZEMA
     Dosage: 2X/DAY
     Route: 061
  2. EUCRISA [Suspect]
     Active Substance: CRISABOROLE
     Indication: SKIN DISCOLOURATION
     Dosage: 1X/DAY AS NEEDED
     Dates: start: 20180901
  3. EUCRISA [Suspect]
     Active Substance: CRISABOROLE
     Indication: DERMATITIS ATOPIC
     Dosage: 1X/DAY (ONCE BEFORE BED AT NIGHT)
     Route: 061

REACTIONS (4)
  - Off label use [Unknown]
  - Poor quality product administered [Unknown]
  - Product storage error [Unknown]
  - Application site pain [Recovering/Resolving]

NARRATIVE: CASE EVENT DATE: 20180901
